FAERS Safety Report 9362400 (Version 1)
Quarter: 2013Q2

REPORT INFORMATION
  Report Type: Spontaneous
  Country: US (occurrence: US)
  Receive Date: 20130622
  Receipt Date: 20130622
  Transmission Date: 20140414
  Serious: No
  Sender: FDA-Public Use
  Company Number: US-US-EMD SERONO, INC.-7153085

PATIENT
  Sex: Male
  Weight: 106 kg

DRUGS (1)
  1. REBIF [Suspect]
     Indication: PRODUCT USED FOR UNKNOWN INDICATION
     Route: 058
     Dates: end: 201207

REACTIONS (5)
  - Electrocardiogram abnormal [Unknown]
  - Joint stiffness [Unknown]
  - Gait disturbance [Unknown]
  - Injection site macule [Unknown]
  - Injection site bruising [Unknown]
